FAERS Safety Report 7068335 (Version 2)
Quarter: 2014Q1

REPORT INFORMATION
  Report Type: Spontaneous
  Country: US (occurrence: None)
  Receive Date: 20090724
  Receipt Date: 20140219
  Transmission Date: 20141002
  Serious: Yes (Other)
  Sender: FDA-Public Use
  Company Number: 2009S1005631

PATIENT
  Age: 35 Year
  Sex: Male
  Weight: 136.53 kg

DRUGS (1)
  1. FLEET PHOSPHO-SODA ORAL SALINE LAXATIVE, GINGER-LEMON FLAVOR (ORAL SOLUTION) [Suspect]
     Indication: PRODUCT USED FOR UNKNOWN INDICATION
     Route: 048

REACTIONS (5)
  - Renal failure [None]
  - Dialysis [None]
  - Renal failure chronic [None]
  - Nephrotic syndrome [None]
  - Glomerulonephritis chronic [None]
